FAERS Safety Report 9238277 (Version 1)
Quarter: 2013Q2

REPORT INFORMATION
  Report Type: Spontaneous
  Country: DK (occurrence: None)
  Receive Date: 20130416
  Receipt Date: 20130416
  Transmission Date: 20140414
  Serious: Yes (Other)
  Sender: FDA-Public Use
  Company Number: SYM-2013-02868

PATIENT
  Age: 68 Year
  Sex: Male

DRUGS (3)
  1. ZYBAN [Suspect]
     Indication: SMOKING CESSATION THERAPY
     Dates: start: 20120507, end: 20120510
  2. PARACETAMOL (PARACETAMOL)(PARACETAMOL) [Concomitant]
  3. FISH OIL (FISH OIL)(FISH OIL) [Concomitant]

REACTIONS (2)
  - Deafness [None]
  - Tinnitus [None]
